FAERS Safety Report 22323720 (Version 1)
Quarter: 2023Q2

REPORT INFORMATION
  Report Type: Spontaneous
  Country: US (occurrence: US)
  Receive Date: 20230516
  Receipt Date: 20230516
  Transmission Date: 20230722
  Serious: Yes (Death, Other)
  Sender: FDA-Public Use
  Company Number: US-AMGEN-USASP2023082275

PATIENT
  Age: 41 Year
  Sex: Male

DRUGS (14)
  1. BLINCYTO [Suspect]
     Active Substance: BLINATUMOMAB
     Indication: B-cell type acute leukaemia
     Dosage: UNK
     Route: 065
  2. FILGRASTIM [Suspect]
     Active Substance: FILGRASTIM
     Indication: Prophylaxis
     Dosage: UNK
     Route: 065
  3. CYCLOPHOSPHAMIDE [Concomitant]
     Active Substance: CYCLOPHOSPHAMIDE
  4. VINCRISTINE [Concomitant]
     Active Substance: VINCRISTINE
  5. DOXORUBICIN [Concomitant]
     Active Substance: DOXORUBICIN
  6. DEXAMETHASONE [Concomitant]
     Active Substance: DEXAMETHASONE
  7. METHOTREXATE [Concomitant]
     Active Substance: METHOTREXATE
     Route: 029
  8. CYTARABINE [Concomitant]
     Active Substance: CYTARABINE
  9. INOTUZUMAB OZOGAMICIN [Concomitant]
     Active Substance: INOTUZUMAB OZOGAMICIN
  10. FLUDARABINE [Concomitant]
     Active Substance: FLUDARABINE PHOSPHATE
  11. IDARUBICIN [Concomitant]
     Active Substance: IDARUBICIN
  12. VIDAZA [Concomitant]
     Active Substance: AZACITIDINE
  13. VENETOCLAX [Concomitant]
     Active Substance: VENETOCLAX
  14. HYDREA [Concomitant]
     Active Substance: HYDROXYUREA

REACTIONS (1)
  - Death [Fatal]
